FAERS Safety Report 6557402-7 (Version None)
Quarter: 2010Q1

REPORT INFORMATION
  Report Type: 
  Country: None (occurrence: None)
  Receive Date: 20100129
  Receipt Date: 20100126
  Transmission Date: 20100710
  Serious: Yes (Death, Other)
  Sender: FDA-Public Use
  Company Number: PHEH2009US15571

PATIENT
  Sex: Male

DRUGS (6)
  1. EXJADE [Suspect]
     Indication: MYELODYSPLASTIC SYNDROME
     Dosage: 500MG, THREE TABS PO
     Route: 048
     Dates: start: 20090219
  2. LIPITOR [Concomitant]
     Dosage: 10 MG, QD
  3. LOPRESSOR [Concomitant]
     Dosage: 30 MG, QD
  4. LASIX [Concomitant]
     Dosage: 20 MG, QD
  5. FOLIC ACID [Concomitant]
     Dosage: 1 MG, QD
  6. COMPAZINE [Concomitant]
     Dosage: 10 MG, UNK

REACTIONS (6)
  - DEATH [None]
  - HAEMATOCRIT DECREASED [None]
  - HAEMOGLOBIN DECREASED [None]
  - PLATELET COUNT DECREASED [None]
  - RED BLOOD CELL COUNT DECREASED [None]
  - WHITE BLOOD CELL COUNT DECREASED [None]
